FAERS Safety Report 7248213-8 (Version None)
Quarter: 2011Q1

REPORT INFORMATION
  Report Type: 
  Country: None (occurrence: None)
  Receive Date: 20110127
  Receipt Date: 20110121
  Transmission Date: 20110831
  Serious: Yes (Other)
  Sender: FDA-Public Use
  Company Number: FR-BAYER-2011-006152

PATIENT
  Sex: Female

DRUGS (1)
  1. QLAIRA [Suspect]
     Dosage: UNK
     Dates: start: 20100201, end: 20101201

REACTIONS (2)
  - BREAST CANCER [None]
  - BREAST MASS [None]
